FAERS Safety Report 25574376 (Version 2)
Quarter: 2025Q3

REPORT INFORMATION
  Report Type: Report from Study
  Country: CO (occurrence: CO)
  Receive Date: 20250717
  Receipt Date: 20250811
  Transmission Date: 20251021
  Serious: Yes (Hospitalization, Other)
  Sender: JOHNSON AND JOHNSON
  Company Number: CO-JNJFOC-20240811048

PATIENT
  Age: 46 Year
  Sex: Male
  Weight: 80 kg

DRUGS (2)
  1. SIMPONI [Suspect]
     Active Substance: GOLIMUMAB
     Indication: Ankylosing spondylitis
     Dosage: LAST DATE OF ADMINISTRATION: 19-JUN-2025
     Route: 058
     Dates: start: 20130730
  2. SIMPONI [Suspect]
     Active Substance: GOLIMUMAB
     Dosage: LAST DATE OF ADMINISTRATION: 19-JUN-2025
     Route: 058
     Dates: start: 20130730

REACTIONS (4)
  - Gastritis bacterial [Not Recovered/Not Resolved]
  - Ankylosing spondylitis [Unknown]
  - Product dose omission issue [Unknown]
  - Off label use [Unknown]

NARRATIVE: CASE EVENT DATE: 20250701
